FAERS Safety Report 5342835-7 (Version None)
Quarter: 2007Q2

REPORT INFORMATION
  Report Type: 
  Country: None (occurrence: None)
  Receive Date: 20070601
  Receipt Date: 20070523
  Transmission Date: 20071010
  Serious: Yes (Other)
  Sender: FDA-Public Use
  Company Number: SE-PFIZER INC-2007042509

PATIENT
  Sex: Male

DRUGS (2)
  1. XANOR [Suspect]
     Dosage: DAILY DOSE:1.5MG
     Route: 048
  2. ALL OTHER THERAPEUTIC PRODUCTS [Concomitant]

REACTIONS (10)
  - ACTIVITIES OF DAILY LIVING IMPAIRED [None]
  - BLINDNESS TRANSIENT [None]
  - DEPRESSED MOOD [None]
  - DIZZINESS [None]
  - DRUG WITHDRAWAL SYNDROME [None]
  - EXTRASYSTOLES [None]
  - FATIGUE [None]
  - GAIT DISTURBANCE [None]
  - HYPERHIDROSIS [None]
  - SUICIDAL IDEATION [None]
